FAERS Safety Report 20486308 (Version 2)
Quarter: 2022Q1

REPORT INFORMATION
  Report Type: Spontaneous
  Country: JP (occurrence: JP)
  Receive Date: 20220217
  Receipt Date: 20220307
  Transmission Date: 20220423
  Serious: No
  Sender: FDA-Public Use
  Company Number: JP-GSKNCCC-Case-01419767_AE-54741

PATIENT
  Age: 34 Year
  Sex: Female

DRUGS (1)
  1. SOTROVIMAB [Suspect]
     Active Substance: SOTROVIMAB
     Indication: COVID-19
     Dosage: 100 ML
     Dates: start: 20220203, end: 20220203

REACTIONS (2)
  - Anxiety [Recovered/Resolved]
  - Irritability [Recovered/Resolved]
